FAERS Safety Report 11986344 (Version 1)
Quarter: 2016Q1

REPORT INFORMATION
  Report Type: Spontaneous
  Country: US (occurrence: None)
  Receive Date: 20160201
  Receipt Date: 20160201
  Transmission Date: 20160526
  Serious: Yes (Disabling)
  Sender: FDA-Public Use
  Company Number: None

PATIENT
  Age: 68 Year
  Sex: Male
  Weight: 81.65 kg

DRUGS (10)
  1. ASPERINE [Concomitant]
  2. CALCIUM [Concomitant]
     Active Substance: CALCIUM
  3. TEMAZEPAM. [Concomitant]
     Active Substance: TEMAZEPAM
  4. RISPERIDONE. [Concomitant]
     Active Substance: RISPERIDONE
  5. ASPIRIN. [Concomitant]
     Active Substance: ASPIRIN
  6. DOCUSATE SODIUM. [Concomitant]
     Active Substance: DOCUSATE SODIUM
  7. CRESTOR [Suspect]
     Active Substance: ROSUVASTATIN CALCIUM
     Indication: BLOOD CHOLESTEROL INCREASED
     Dosage: 1
     Route: 048
  8. BUPROPION. [Concomitant]
     Active Substance: BUPROPION
  9. MELATONIN [Concomitant]
     Active Substance: MELATONIN
  10. QUETIAPINE [Concomitant]
     Active Substance: QUETIAPINE

REACTIONS (1)
  - Insomnia [None]

NARRATIVE: CASE EVENT DATE: 20160101
